FAERS Safety Report 19244833 (Version 1)
Quarter: 2021Q2

REPORT INFORMATION
  Report Type: Spontaneous
  Country: US (occurrence: US)
  Receive Date: 20210512
  Receipt Date: 20210512
  Transmission Date: 20210717
  Serious: Yes (Other)
  Sender: FDA-Public Use
  Company Number: US-LUPIN PHARMACEUTICALS INC.-2021-06740

PATIENT
  Age: 17 Year
  Sex: Male

DRUGS (30)
  1. CLOBAZAM. [Concomitant]
     Active Substance: CLOBAZAM
     Indication: ATONIC SEIZURES
  2. TOPIRAMAT [Suspect]
     Active Substance: TOPIRAMATE
     Indication: GENERALISED TONIC-CLONIC SEIZURE
     Dosage: UNK (STOPPED)
     Route: 065
  3. FELBAMATE. [Concomitant]
     Active Substance: FELBAMATE
     Indication: ATONIC SEIZURES
  4. CLOBAZAM. [Concomitant]
     Active Substance: CLOBAZAM
     Indication: PARTIAL SEIZURES
  5. NICOTINE. [Concomitant]
     Active Substance: NICOTINE
     Indication: PARTIAL SEIZURES
  6. TOPIRAMAT [Suspect]
     Active Substance: TOPIRAMATE
     Indication: ATONIC SEIZURES
  7. PHENYTOIN SODIUM. [Suspect]
     Active Substance: PHENYTOIN SODIUM
     Indication: ATONIC SEIZURES
  8. PHENYTOIN SODIUM. [Suspect]
     Active Substance: PHENYTOIN SODIUM
     Indication: GENERALISED TONIC-CLONIC SEIZURE
  9. LACOSAMIDE. [Suspect]
     Active Substance: LACOSAMIDE
     Indication: ATONIC SEIZURES
  10. ZONISAMIDE. [Concomitant]
     Active Substance: ZONISAMIDE
     Indication: PARTIAL SEIZURES
  11. TOPIRAMAT [Suspect]
     Active Substance: TOPIRAMATE
     Indication: PARTIAL SEIZURES
  12. PHENYTOIN SODIUM. [Suspect]
     Active Substance: PHENYTOIN SODIUM
     Indication: PARTIAL SEIZURES
     Dosage: UNK (STOPPED)
     Route: 065
  13. FELBAMATE. [Concomitant]
     Active Substance: FELBAMATE
     Indication: PARTIAL SEIZURES
  14. CARBAMAZEPINE. [Suspect]
     Active Substance: CARBAMAZEPINE
     Indication: GENERALISED TONIC-CLONIC SEIZURE
     Dosage: UNK (STOPPED)
     Route: 065
  15. ZONISAMIDE. [Concomitant]
     Active Substance: ZONISAMIDE
     Indication: GENERALISED TONIC-CLONIC SEIZURE
     Dosage: UNK
     Route: 065
  16. LEVETIRACETAM. [Suspect]
     Active Substance: LEVETIRACETAM
     Indication: GENERALISED TONIC-CLONIC SEIZURE
     Dosage: UNK (STOPPED)
     Route: 065
  17. LEVETIRACETAM. [Suspect]
     Active Substance: LEVETIRACETAM
     Indication: PARTIAL SEIZURES
  18. CARBAMAZEPINE. [Suspect]
     Active Substance: CARBAMAZEPINE
     Indication: ATONIC SEIZURES
  19. CARBAMAZEPINE. [Suspect]
     Active Substance: CARBAMAZEPINE
     Indication: PARTIAL SEIZURES
  20. LACOSAMIDE. [Suspect]
     Active Substance: LACOSAMIDE
     Indication: GENERALISED TONIC-CLONIC SEIZURE
     Dosage: UNK (STOPPED)
     Route: 065
  21. LACOSAMIDE. [Suspect]
     Active Substance: LACOSAMIDE
     Indication: PARTIAL SEIZURES
  22. VALPROIC ACID. [Suspect]
     Active Substance: VALPROIC ACID
     Indication: GENERALISED TONIC-CLONIC SEIZURE
     Dosage: UNK
     Route: 065
  23. VALPROIC ACID. [Suspect]
     Active Substance: VALPROIC ACID
     Indication: ATONIC SEIZURES
  24. CLOBAZAM. [Concomitant]
     Active Substance: CLOBAZAM
     Indication: GENERALISED TONIC-CLONIC SEIZURE
     Dosage: UNK
     Route: 065
  25. NICOTINE. [Concomitant]
     Active Substance: NICOTINE
     Indication: GENERALISED TONIC-CLONIC SEIZURE
     Dosage: 14 MILLIGRAM, QD
     Route: 062
  26. ZONISAMIDE. [Concomitant]
     Active Substance: ZONISAMIDE
     Indication: ATONIC SEIZURES
  27. FELBAMATE. [Concomitant]
     Active Substance: FELBAMATE
     Indication: GENERALISED TONIC-CLONIC SEIZURE
     Dosage: UNK
     Route: 065
  28. LEVETIRACETAM. [Suspect]
     Active Substance: LEVETIRACETAM
     Indication: ATONIC SEIZURES
  29. VALPROIC ACID. [Suspect]
     Active Substance: VALPROIC ACID
     Indication: PARTIAL SEIZURES
  30. NICOTINE. [Concomitant]
     Active Substance: NICOTINE
     Indication: ATONIC SEIZURES

REACTIONS (1)
  - Treatment failure [Unknown]
